FAERS Safety Report 10208711 (Version 1)
Quarter: 2014Q2

REPORT INFORMATION
  Report Type: Spontaneous
  Country: BR (occurrence: BR)
  Receive Date: 20140530
  Receipt Date: 20140530
  Transmission Date: 20141212
  Serious: Yes (Hospitalization, Other)
  Sender: FDA-Public Use
  Company Number: BR-NAPPMUNDI-GBR-2014-0018603

PATIENT
  Age: 59 Year
  Sex: Female
  Weight: 74 kg

DRUGS (2)
  1. OXYCONTIN TABLETS 10 MG [Suspect]
     Indication: ARTHRALGIA
     Dosage: 10 MG, Q12H
     Route: 048
     Dates: start: 20140513, end: 20140515
  2. TIBOLONE [Concomitant]
     Indication: HORMONE REPLACEMENT THERAPY
     Dosage: 1 TABLET, DAILY
     Route: 048

REACTIONS (6)
  - Dysstasia [Recovering/Resolving]
  - Abdominal distension [Recovered/Resolved]
  - Pruritus [Recovering/Resolving]
  - Vomiting [Recovering/Resolving]
  - Dizziness [Recovering/Resolving]
  - Malaise [Recovering/Resolving]
